FAERS Safety Report 14303730 (Version 1)
Quarter: 2017Q4

REPORT INFORMATION
  Report Type: Spontaneous
  Country: GB (occurrence: GB)
  Receive Date: 20171219
  Receipt Date: 20171219
  Transmission Date: 20180321
  Serious: Yes (Other)
  Sender: FDA-Public Use
  Company Number: GB-OTSUKA-21673454

PATIENT
  Age: 30 Year
  Sex: Male
  Weight: 75 kg

DRUGS (1)
  1. ARIPIPRAZOLE. [Suspect]
     Active Substance: ARIPIPRAZOLE
     Indication: PERSONALITY CHANGE
     Dosage: 5 MG, UNK
     Route: 048

REACTIONS (2)
  - Dystonia [Unknown]
  - Off label use [Unknown]

NARRATIVE: CASE EVENT DATE: 20141113
